APPROVED DRUG PRODUCT: TRUVADA
Active Ingredient: EMTRICITABINE; TENOFOVIR DISOPROXIL FUMARATE
Strength: 200MG;300MG
Dosage Form/Route: TABLET;ORAL
Application: N021752 | Product #001 | TE Code: AB
Applicant: GILEAD SCIENCES INC
Approved: Aug 2, 2004 | RLD: Yes | RS: Yes | Type: RX